FAERS Safety Report 15600216 (Version 1)
Quarter: 2018Q4

REPORT INFORMATION
  Report Type: Spontaneous
  Country: CN (occurrence: CN)
  Receive Date: 20181109
  Receipt Date: 20181109
  Transmission Date: 20190205
  Serious: Yes (Life-Threatening, Hospitalization, Disabling)
  Sender: FDA-Public Use
  Company Number: CN-ROCHE-2208073

PATIENT
  Age: 42 Year
  Sex: Female
  Weight: 53 kg

DRUGS (9)
  1. XELODA [Suspect]
     Active Substance: CAPECITABINE
     Indication: NASOPHARYNGEAL CANCER
     Route: 048
     Dates: start: 20180901, end: 20180912
  2. MANNITOL. [Concomitant]
     Active Substance: MANNITOL
     Dosage: 100 UNIT NOT REPORTED
     Route: 041
     Dates: start: 20180830
  3. CISPLATIN. [Suspect]
     Active Substance: CISPLATIN
     Indication: NASOPHARYNGEAL CANCER
     Route: 041
     Dates: start: 20180831, end: 20180831
  4. SODIUM CHLORIDE. [Concomitant]
     Active Substance: SODIUM CHLORIDE
     Dosage: S1807024, FOR DILUTION OF CISPLATIN
     Route: 041
     Dates: start: 20180831, end: 20180831
  5. MAGNESIUM SULFATE. [Concomitant]
     Active Substance: MAGNESIUM SULFATE
     Route: 041
     Dates: start: 20180831, end: 20180831
  6. POTASSIUM CHLORIDE. [Concomitant]
     Active Substance: POTASSIUM CHLORIDE
     Route: 041
     Dates: start: 20180831, end: 20180831
  7. SODIUM CHLORIDE. [Concomitant]
     Active Substance: SODIUM CHLORIDE
     Dosage: S1806046 FOR POST-HYDRATION OF CISPLATIN
     Route: 041
     Dates: start: 20180831, end: 20180831
  8. SODIUM CHLORIDE. [Concomitant]
     Active Substance: SODIUM CHLORIDE
     Dosage: S1807024 FOR PRE-HYDRATION OF CISPLATIN
     Route: 041
     Dates: start: 20180830, end: 20180831
  9. POTASSIUM CHLORIDE. [Concomitant]
     Active Substance: POTASSIUM CHLORIDE
     Route: 041
     Dates: start: 20180831, end: 20180831

REACTIONS (12)
  - Diarrhoea [Recovering/Resolving]
  - Vomiting [Recovering/Resolving]
  - Mouth ulceration [Recovering/Resolving]
  - Off label use [Unknown]
  - Intentional product use issue [Unknown]
  - Blood test abnormal [Recovering/Resolving]
  - Hyponatraemia [Recovering/Resolving]
  - Dizziness [Recovering/Resolving]
  - Nausea [Recovering/Resolving]
  - Syncope [Recovering/Resolving]
  - Acute kidney injury [Recovering/Resolving]
  - Hypokalaemia [Recovering/Resolving]

NARRATIVE: CASE EVENT DATE: 20180912
